FAERS Safety Report 24069327 (Version 2)
Quarter: 2024Q3

REPORT INFORMATION
  Report Type: Report from Study
  Country: ID (occurrence: ID)
  Receive Date: 20240710
  Receipt Date: 20240710
  Transmission Date: 20241017
  Serious: No
  Sender: ROCHE
  Company Number: ID-ROCHE-3335200

PATIENT
  Age: 50 Year
  Sex: Female

DRUGS (1)
  1. PHESGO [Suspect]
     Active Substance: HYALURONIDASE-ZZXF\PERTUZUMAB\TRASTUZUMAB
     Indication: Breast cancer metastatic
     Dosage: PERTUZUMAB/ TRASTUZUMAB: 600 MG/600 MG/10 ML
     Route: 058
     Dates: start: 20230412

REACTIONS (5)
  - Gastrooesophageal reflux disease [Unknown]
  - Haemorrhoids [Unknown]
  - Fatigue [Unknown]
  - Loss of personal independence in daily activities [Unknown]
  - General physical health deterioration [Unknown]
